FAERS Safety Report 7164488-8 (Version None)
Quarter: 2010Q4

REPORT INFORMATION
  Report Type: 
  Country: None (occurrence: None)
  Receive Date: 20101203
  Receipt Date: 20101116
  Transmission Date: 20110411
  Serious: Yes (Other)
  Sender: FDA-Public Use
  Company Number: JPI-P-013031

PATIENT
  Age: 51 Year
  Sex: Female
  Weight: 117.028 kg

DRUGS (1)
  1. XYREM [Suspect]
     Indication: NARCOLEPSY
     Dosage: 13.5 GM (4.5 GM, 3 IN 1 D),ORAL
     Route: 049
     Dates: start: 20070101

REACTIONS (3)
  - ASTHENIA [None]
  - MALAISE [None]
  - MALIGNANT MELANOMA [None]
